FAERS Safety Report 13666500 (Version 1)
Quarter: 2017Q2

REPORT INFORMATION
  Report Type: Spontaneous
  Country: US (occurrence: US)
  Receive Date: 20170619
  Receipt Date: 20170619
  Transmission Date: 20170830
  Serious: No
  Sender: FDA-Public Use
  Company Number: US-ROCHE-1361314

PATIENT
  Sex: Female

DRUGS (10)
  1. HYDROCHLOROTHIAZIDE. [Concomitant]
     Active Substance: HYDROCHLOROTHIAZIDE
  2. FOLBIC [Concomitant]
     Active Substance: CYANOCOBALAMIN\FOLIC ACID\PYRIDOXINE
     Route: 065
  3. AMITRIPTYLINE HCL [Concomitant]
     Active Substance: AMITRIPTYLINE
  4. VITAMIN B12 [Concomitant]
     Active Substance: CYANOCOBALAMIN
  5. MILK THISTLE [Concomitant]
     Active Substance: MILK THISTLE
  6. LISINOPRIL. [Concomitant]
     Active Substance: LISINOPRIL
  7. FISH OIL [Concomitant]
     Active Substance: FISH OIL
  8. ESTER-C (UNITED STATES) [Concomitant]
  9. XELODA [Suspect]
     Active Substance: CAPECITABINE
     Indication: COLON CANCER
     Route: 048
     Dates: start: 20140221
  10. SELENIUM [Concomitant]
     Active Substance: SELENIUM

REACTIONS (2)
  - Glossodynia [Unknown]
  - Constipation [Unknown]
